FAERS Safety Report 5378377-2 (Version None)
Quarter: 2007Q3

REPORT INFORMATION
  Report Type: 
  Country: None (occurrence: None)
  Receive Date: 20070702
  Receipt Date: 20070702
  Transmission Date: 20080115
  Serious: Yes (Death)
  Sender: FDA-Public Use
  Company Number: None

PATIENT
  Sex: Male
  Weight: 63.95 kg

DRUGS (8)
  1. CISPLATIN [Suspect]
     Dosage: 167 MG
     Dates: end: 20070625
  2. KEPIVANCE [Suspect]
     Dosage: 11431 MCG
     Dates: end: 20070625
  3. ATIVAN [Concomitant]
  4. FENTANYL TRANSDERMAL SYSTEM [Concomitant]
  5. OXYCODONE HCL [Concomitant]
  6. THORAZINE [Concomitant]
  7. VICODIN [Concomitant]
  8. WELLBUTRIN [Concomitant]

REACTIONS (1)
  - DEATH [None]
